FAERS Safety Report 7138187-2 (Version None)
Quarter: 2010Q4

REPORT INFORMATION
  Report Type: 
  Country: None (occurrence: None)
  Receive Date: 20101206
  Receipt Date: 20100224
  Transmission Date: 20110411
  Serious: No
  Sender: FDA-Public Use
  Company Number: US-ABBOTT-09P-163-0615620-00

PATIENT
  Age: 11 Year
  Sex: Male

DRUGS (3)
  1. OMNICEF [Suspect]
     Indication: SINUSITIS
     Dosage: UNKNOWN DOSE
     Route: 048
     Dates: start: 20091215
  2. XOPENEX [Concomitant]
     Indication: ASTHMA
     Route: 055
  3. ALLEGRA [Concomitant]
     Indication: PRODUCT USED FOR UNKNOWN INDICATION

REACTIONS (1)
  - RASH [None]
